FAERS Safety Report 6752735-3 (Version None)
Quarter: 2010Q2

REPORT INFORMATION
  Report Type: 
  Country: None (occurrence: None)
  Receive Date: 20100528
  Receipt Date: 20100422
  Transmission Date: 20101027
  Serious: Yes (Hospitalization)
  Sender: FDA-Public Use
  Company Number: 1-17244257

PATIENT
  Age: 52 Year
  Sex: Female
  Weight: 45.3597 kg

DRUGS (16)
  1. QUININE SULFATE (MANUFACTURED BY ZENITH, IVAX, WATSON + ALLAN) [Suspect]
     Indication: MUSCLE SPASMS
     Dosage: 520 MG, AT BEDTIME, ORAL
     Route: 048
     Dates: start: 20050128, end: 20070831
  2. PRILOSEC [Concomitant]
  3. MOBIC [Concomitant]
  4. SINGULAIR [Concomitant]
  5. ADVAIR DISKUS 100/50 [Concomitant]
  6. ALLEGRA [Concomitant]
  7. PERCOCET [Concomitant]
  8. ALBUTEROL [Concomitant]
  9. KEFLEX [Concomitant]
  10. COLACE [Concomitant]
  11. TAMBOCOR [Concomitant]
  12. PROTONIX [Concomitant]
  13. UNSPECIFIED MULTIVITAMINS [Concomitant]
  14. VITAMIN B-12 [Concomitant]
  15. FOLIC ACID [Concomitant]
  16. BENEFIBER [Concomitant]

REACTIONS (14)
  - ASTHMA [None]
  - BACK PAIN [None]
  - DECREASED APPETITE [None]
  - DIVERTICULUM INTESTINAL [None]
  - GASTRITIS [None]
  - HAEMATOCHEZIA [None]
  - HAEMORRHOID OPERATION [None]
  - HIATUS HERNIA [None]
  - IRON DEFICIENCY ANAEMIA [None]
  - MICROCYTIC ANAEMIA [None]
  - PAIN IN EXTREMITY [None]
  - PLATELET COUNT INCREASED [None]
  - POST PROCEDURAL INFECTION [None]
  - THROMBOCYTOPENIA [None]
